FAERS Safety Report 11773210 (Version 2)
Quarter: 2016Q1

REPORT INFORMATION
  Report Type: Spontaneous
  Country: US (occurrence: US)
  Receive Date: 20151124
  Receipt Date: 20160223
  Transmission Date: 20160525
  Serious: No
  Sender: FDA-Public Use
  Company Number: US-TARO-2015TAR01050

PATIENT
  Age: 47 Year
  Sex: Female
  Weight: 72.11 kg

DRUGS (6)
  1. HYDROCORTISONE. [Concomitant]
     Active Substance: HYDROCORTISONE
     Dosage: UNK
  2. NALTREXONE [Concomitant]
     Active Substance: NALTREXONE
     Dosage: UNK
  3. AMLODIPINE [Concomitant]
     Active Substance: AMLODIPINE BESYLATE
     Indication: FAMILIAL PERIODIC PARALYSIS
     Dosage: UNK
  4. KEVEYIS [Suspect]
     Active Substance: DICHLORPHENAMIDE
     Indication: FAMILIAL PERIODIC PARALYSIS
     Dosage: 50 MG, 2X/DAY
     Route: 048
     Dates: start: 201509, end: 201510
  5. KEVEYIS [Suspect]
     Active Substance: DICHLORPHENAMIDE
     Dosage: 50 UNK, UNK
     Route: 048
     Dates: start: 201510, end: 20151029
  6. LIOTHYRONINE [Concomitant]
     Active Substance: LIOTHYRONINE

REACTIONS (8)
  - Paraesthesia [Recovered/Resolved]
  - Headache [Recovered/Resolved]
  - Bradyphrenia [Not Recovered/Not Resolved]
  - Hypoaesthesia [Recovered/Resolved]
  - Drug dose omission [Recovered/Resolved]
  - Disturbance in attention [Not Recovered/Not Resolved]
  - Pain [Recovered/Resolved]
  - Drug ineffective [Not Recovered/Not Resolved]

NARRATIVE: CASE EVENT DATE: 201509
